FAERS Safety Report 5357972-0 (Version None)
Quarter: 2007Q2

REPORT INFORMATION
  Report Type: 
  Country: None (occurrence: None)
  Receive Date: 20070530
  Receipt Date: 20070103
  Transmission Date: 20071010
  Serious: Yes (Hospitalization)
  Sender: FDA-Public Use
  Company Number: US200612003841

PATIENT
  Age: 58 Year
  Sex: Female
  Weight: 86.6 kg

DRUGS (1)
  1. OLANZAPINE [Suspect]
     Indication: DEPRESSION
     Dosage: 5 MG
     Dates: start: 19900101

REACTIONS (7)
  - BLOOD CHOLESTEROL ABNORMAL [None]
  - BLOOD TRIGLYCERIDES INCREASED [None]
  - CHEST PAIN [None]
  - DIABETES MELLITUS [None]
  - HYPERTENSION [None]
  - HYPOTENSION [None]
  - METABOLIC DISORDER [None]
